FAERS Safety Report 7608192-8 (Version None)
Quarter: 2011Q3

REPORT INFORMATION
  Report Type: 
  Country: None (occurrence: None)
  Receive Date: 20110714
  Receipt Date: 20110705
  Transmission Date: 20111222
  Serious: Yes (Hospitalization, Other)
  Sender: FDA-Public Use
  Company Number: FR-ASTELLAS-2011EU003161

PATIENT
  Age: 12 Year
  Sex: Female

DRUGS (10)
  1. FUMAFER [Concomitant]
     Dosage: 1 DF, TID
     Route: 048
  2. PROGRAF [Suspect]
     Dosage: 0.4 MG, BID
     Route: 048
     Dates: end: 20110504
  3. BRICANYL [Concomitant]
     Dosage: UNK
     Route: 055
  4. PROGRAF [Suspect]
     Dosage: 4 MG, BID
     Route: 048
  5. FLUTICASONE PROPIONATE/SALMETEROL [Suspect]
     Dosage: UNK
     Route: 055
  6. OMEPRAZOLE [Concomitant]
     Dosage: 20 MG, UNKNOWN/D
     Route: 048
  7. TACROLIMUS [Suspect]
     Indication: LIVER TRANSPLANT
     Dosage: 8 MG, UNKNOWN/D
     Route: 048
     Dates: start: 20110504, end: 20110512
  8. CELLCEPT [Concomitant]
     Dosage: 1 DF, BID
     Route: 048
  9. URSOLVAN [Concomitant]
     Dosage: 200 MG, BID
     Route: 048
  10. TACROLIMUS [Suspect]
     Dosage: 4 MG, UNKNOWN/D
     Route: 048
     Dates: start: 20110512, end: 20110516

REACTIONS (11)
  - BALANCE DISORDER [None]
  - SOMNOLENCE [None]
  - EYELID OEDEMA [None]
  - OFF LABEL USE [None]
  - HYPERAMMONAEMIA [None]
  - MEDICATION ERROR [None]
  - INCOHERENT [None]
  - OVERDOSE [None]
  - DRUG LEVEL INCREASED [None]
  - ASTHMA [None]
  - ENCEPHALOPATHY [None]
